FAERS Safety Report 7001799 (Version 3)
Quarter: 2012Q4

REPORT INFORMATION
  Report Type: 
  Country: CA (occurrence: CA)
  Receive Date: 20090526
  Receipt Date: 20121104
  Transmission Date: 20130627
  Serious: Yes (Life-Threatening, Hospitalization, Other)
  Sender: FDA-Public Use
  Company Number: PHHY2009CA19646

PATIENT
  Sex: Male

DRUGS (2)
  1. SANDOSTATIN LAR [Suspect]
     Indication: CARCINOID TUMOUR
     Dosage: 20 mg, BIW
     Route: 030
     Dates: start: 20020520
  2. SANDOSTATIN LAR [Suspect]
     Dosage: 60 mg, every 2 weeks
     Route: 030

REACTIONS (10)
  - Pneumonia aspiration [Unknown]
  - Post procedural complication [Unknown]
  - Terminal state [Unknown]
  - Neoplasm progression [Unknown]
  - Malignant neoplasm progression [Unknown]
  - Metastatic carcinoid tumour [Unknown]
  - Diarrhoea [Unknown]
  - Flushing [Unknown]
  - Fungal infection [Unknown]
  - Abdominal pain [Recovered/Resolved]
